FAERS Safety Report 8103811 (Version 6)
Quarter: 2014Q1

REPORT INFORMATION
  Report Type: Spontaneous
  Country: JP (occurrence: JP)
  Receive Date: 20110824
  Receipt Date: 20140317
  Transmission Date: 20141002
  Serious: Yes (Death, Life-Threatening, Hospitalization)
  Sender: FDA-Public Use
  Company Number: JP-ELI_LILLY_AND_COMPANY-JP201108005511

PATIENT
  Age: 59 Year
  Sex: Female
  Weight: 46 kg

DRUGS (4)
  1. GEMZAR [Suspect]
     Indication: BREAST CANCER
     Dosage: 1250 MG/M2, EVERY 2 WEEKS
     Route: 042
     Dates: start: 20110308, end: 20110315
  2. OXYCODONE HYDROCHLORIDE [Concomitant]
     Indication: CANCER PAIN
     Dosage: 2.5 MG, QD
     Route: 048
     Dates: start: 20110222
  3. LOXOPROFEN SODIUM [Concomitant]
     Indication: CANCER PAIN
     Dosage: 60 MG, QD
     Route: 048
  4. MUCOSTA [Concomitant]
     Indication: CANCER PAIN
     Dosage: 100 MG, QD
     Route: 048

REACTIONS (5)
  - Neoplasm progression [Fatal]
  - Tumour lysis syndrome [Recovered/Resolved]
  - Pancreatitis acute [Recovered/Resolved]
  - Anaemia [Recovered/Resolved]
  - Pseudomembranous colitis [Recovered/Resolved]
